FAERS Safety Report 9925091 (Version 1)
Quarter: 2014Q1

REPORT INFORMATION
  Report Type: Spontaneous
  Country: US (occurrence: None)
  Receive Date: 20140225
  Receipt Date: 20140225
  Transmission Date: 20141002
  Serious: Yes (Other)
  Sender: FDA-Public Use
  Company Number: None

PATIENT
  Age: 24 Year
  Sex: Female
  Weight: 59.42 kg

DRUGS (1)
  1. VYVANSE [Suspect]
     Indication: ATTENTION DEFICIT/HYPERACTIVITY DISORDER
     Dosage: 1PILL ONCE DAILY
     Route: 048
     Dates: start: 20140203, end: 20140224

REACTIONS (3)
  - Drug ineffective [None]
  - Product quality issue [None]
  - Panic attack [None]
